FAERS Safety Report 6699089-9 (Version None)
Quarter: 2010Q2

REPORT INFORMATION
  Report Type: 
  Country: None (occurrence: None)
  Receive Date: 20100423
  Receipt Date: 20100414
  Transmission Date: 20101027
  Serious: Yes (Hospitalization, Other)
  Sender: FDA-Public Use
  Company Number: 2008-187088-NL

PATIENT
  Age: 56 Year
  Sex: Male
  Weight: 74 kg

DRUGS (13)
  1. REMERON [Suspect]
     Indication: DEPRESSION
     Dosage: 0.5 MG; QD; PO; 30  MG; QD; PO
     Route: 048
     Dates: start: 20080723, end: 20080723
  2. REMERON [Suspect]
     Indication: DEPRESSION
     Dosage: 0.5 MG; QD; PO; 30  MG; QD; PO
     Route: 048
     Dates: start: 20080724, end: 20080807
  3. RISPERIDONE [Suspect]
     Indication: CYSTITIS
     Dosage: 250 MG; BID; PO
     Route: 048
     Dates: start: 20080729, end: 20080807
  4. PARACETAMOL /00020001/ (PARACETAMOL /00020001/) [Suspect]
     Indication: ANALGESIC THERAPY
     Dosage: 500 MG;TID;PO;  500 MG;QID;PO
     Route: 048
     Dates: start: 20080725, end: 20080725
  5. PARACETAMOL /00020001/ (PARACETAMOL /00020001/) [Suspect]
     Indication: ANALGESIC THERAPY
     Dosage: 500 MG;TID;PO;  500 MG;QID;PO
     Route: 048
     Dates: start: 20080726, end: 20080805
  6. ENAHEXAL /00574902/ [Concomitant]
  7. FLUOXETINE HCL [Concomitant]
  8. IBUPROFEN TABLETS [Concomitant]
  9. OMNIC OCAS [Concomitant]
  10. PANTOZOL [Concomitant]
  11. REQUIP [Concomitant]
  12. LORAZEPAM [Concomitant]
  13. CIPROFLOXACIN [Suspect]
     Dosage: 250  MG BID
     Route: 048
     Dates: start: 20080729, end: 20080807

REACTIONS (3)
  - FATIGUE [None]
  - HEPATITIS ACUTE [None]
  - SLEEP DISORDER [None]
